FAERS Safety Report 20859300 (Version 8)
Quarter: 2022Q2

REPORT INFORMATION
  Report Type: Spontaneous
  Country: US (occurrence: US)
  Receive Date: 20220523
  Receipt Date: 20220617
  Transmission Date: 20220721
  Serious: Yes (Other)
  Sender: FDA-Public Use
  Company Number: US-SA-SAC20220519000566

PATIENT
  Age: 59 Year
  Sex: Female

DRUGS (4)
  1. CABLIVI [Suspect]
     Active Substance: CAPLACIZUMAB-YHDP
     Indication: Thrombotic microangiopathy
     Dosage: 11 MG, QD
     Route: 058
     Dates: start: 20220513
  2. CABLIVI [Suspect]
     Active Substance: CAPLACIZUMAB-YHDP
     Indication: Immune thrombocytopenia
  3. METOPROLOL [Concomitant]
     Active Substance: METOPROLOL
     Dosage: 75 MG, BID
  4. MELATONIN [Concomitant]
     Active Substance: MELATONIN
     Dosage: 10 MG, QD

REACTIONS (38)
  - Haematochezia [Unknown]
  - Diarrhoea [Recovered/Resolved]
  - Joint swelling [Unknown]
  - Pain in extremity [Unknown]
  - Thirst [Unknown]
  - Arthralgia [Unknown]
  - Hunger [Unknown]
  - Condition aggravated [Unknown]
  - Injection site bruising [Unknown]
  - Urinary tract infection [Unknown]
  - Body temperature increased [Unknown]
  - Vomiting [Unknown]
  - Nausea [Unknown]
  - Pain [Unknown]
  - Feeling abnormal [Unknown]
  - Muscle spasms [Unknown]
  - White blood cell count abnormal [Unknown]
  - Mean cell volume abnormal [Unknown]
  - Mean cell haemoglobin concentration abnormal [Unknown]
  - Granulocytes abnormal [Unknown]
  - Reticulocyte count abnormal [Unknown]
  - Glomerular filtration rate abnormal [Unknown]
  - Blood chloride abnormal [Unknown]
  - Blood lactate dehydrogenase abnormal [Unknown]
  - Red blood cell count abnormal [Unknown]
  - Haemoglobin abnormal [Unknown]
  - Red cell distribution width abnormal [Unknown]
  - Neutrophil count abnormal [Unknown]
  - Fibrin D dimer increased [Unknown]
  - Carbon dioxide abnormal [Unknown]
  - Haptoglobin abnormal [Unknown]
  - Blood glucose abnormal [Unknown]
  - Myalgia [Unknown]
  - Fatigue [Unknown]
  - Product reconstitution quality issue [Unknown]
  - Drug ineffective [Unknown]
  - Product storage error [Unknown]
  - Off label use [Unknown]

NARRATIVE: CASE EVENT DATE: 20220101
